FAERS Safety Report 4287433-1 (Version None)
Quarter: 2004Q1

REPORT INFORMATION
  Report Type: 
  Country: None (occurrence: None)
  Receive Date: 20040209
  Receipt Date: 20030616
  Transmission Date: 20041129
  Serious: No
  Sender: FDA-Public Use
  Company Number: US-GLAXOSMITHKLINE-A0413841A

PATIENT
  Age: 56 Year
  Sex: Female

DRUGS (2)
  1. PAXIL CR [Suspect]
     Route: 048
  2. PAXIL [Suspect]
     Route: 048

REACTIONS (5)
  - ABNORMAL DREAMS [None]
  - ARRHYTHMIA [None]
  - HOT FLUSH [None]
  - INSOMNIA [None]
  - PALPITATIONS [None]
